FAERS Safety Report 4788574-2 (Version None)
Quarter: 2005Q4

REPORT INFORMATION
  Report Type: 
  Country: None (occurrence: None)
  Receive Date: 20051005
  Receipt Date: 20051005
  Transmission Date: 20060501
  Serious: Yes (Life-Threatening, Hospitalization)
  Sender: FDA-Public Use
  Company Number: None

PATIENT
  Age: 45 Year
  Sex: Male

DRUGS (4)
  1. LISINOPRIL AND HYDROCHLOROTHIAZIDE [Suspect]
     Indication: HYPERTENSION
     Dosage: 20/25 MG PO QD
     Route: 048
     Dates: start: 20040901
  2. LANSOPRAZOLE [Concomitant]
  3. FOLATE [Concomitant]
  4. INSULIN GLARGINE [Concomitant]

REACTIONS (3)
  - DIABETIC KETOACIDOSIS [None]
  - DYSPHAGIA [None]
  - SENSATION OF FOREIGN BODY [None]
